FAERS Safety Report 5502956-2 (Version None)
Quarter: 2007Q4

REPORT INFORMATION
  Report Type: 
  Country: None (occurrence: None)
  Receive Date: 20071031
  Receipt Date: 20071025
  Transmission Date: 20080405
  Serious: Yes (Hospitalization)
  Sender: FDA-Public Use
  Company Number: B0493093A

PATIENT
  Age: 49 Year
  Sex: Female
  Weight: 73 kg

DRUGS (6)
  1. LAPATINIB [Suspect]
     Dosage: 1250MG PER DAY
     Route: 048
     Dates: start: 20070906, end: 20071022
  2. CAPECITABINE [Suspect]
     Dosage: 3600MG PER DAY
     Route: 048
     Dates: start: 20071004, end: 20071018
  3. MS CONTIN [Concomitant]
     Dosage: 30MG THREE TIMES PER DAY
     Route: 048
     Dates: start: 20070430
  4. OXYCONTIN [Concomitant]
     Dosage: 10MG THREE TIMES PER DAY
     Route: 048
     Dates: start: 20070611
  5. NEURONTIN [Concomitant]
     Dosage: 1200MG THREE TIMES PER DAY
     Route: 048
     Dates: start: 20070430
  6. ETRAVIL [Concomitant]
     Dosage: 10MG TWICE PER DAY
     Route: 048
     Dates: start: 20070430

REACTIONS (5)
  - BODY TEMPERATURE INCREASED [None]
  - FATIGUE [None]
  - RASH MACULAR [None]
  - RASH PAPULAR [None]
  - URTICARIA [None]
